FAERS Safety Report 7045726-9 (Version None)
Quarter: 2010Q4

REPORT INFORMATION
  Report Type: 
  Country: None (occurrence: None)
  Receive Date: 20101014
  Receipt Date: 20101006
  Transmission Date: 20110411
  Serious: Yes (Hospitalization)
  Sender: FDA-Public Use
  Company Number: CA-MERCK-1010USA00783

PATIENT
  Age: 48 Year
  Sex: Female
  Weight: 82 kg

DRUGS (2)
  1. SINGULAIR [Suspect]
     Route: 048
  2. VENTOLIN [Concomitant]
     Route: 065

REACTIONS (3)
  - ARTHRALGIA [None]
  - MYALGIA [None]
  - NON-CARDIAC CHEST PAIN [None]
